FAERS Safety Report 18463187 (Version 1)
Quarter: 2020Q4

REPORT INFORMATION
  Report Type: Other
  Country: PH (occurrence: PH)
  Receive Date: 20201104
  Receipt Date: 20201104
  Transmission Date: 20210114
  Serious: Yes (Death, Other)
  Sender: FDA-Public Use
  Company Number: PH-ROCHE-2704828

PATIENT
  Age: 47 Year
  Sex: Male

DRUGS (1)
  1. ACTILYSE [Suspect]
     Active Substance: ALTEPLASE
     Indication: ISCHAEMIC STROKE
     Dosage: TOTAL DOSE OF 75.87 MG (0.9 MG/KG AT 84.3 KG) WAS GIVEN WITHIN 1 H AND 20 MIN POST ICTUS
     Route: 042

REACTIONS (6)
  - Cerebral haematoma [Unknown]
  - Pneumonia [Fatal]
  - Cerebral haemorrhage [Unknown]
  - Brain oedema [Unknown]
  - Septic shock [Fatal]
  - Brain stem haemorrhage [Unknown]
